FAERS Safety Report 22623896 (Version 1)
Quarter: 2023Q2

REPORT INFORMATION
  Report Type: Spontaneous
  Country: US (occurrence: US)
  Receive Date: 20230621
  Receipt Date: 20230621
  Transmission Date: 20230722
  Serious: No
  Sender: FDA-Public Use
  Company Number: US-PROVENTION BIO, INC.-US-PRAG-23-00025

PATIENT
  Age: 27 Year
  Sex: Female

DRUGS (5)
  1. TZIELD [Suspect]
     Active Substance: TEPLIZUMAB-MZWV
     Indication: Diabetes prophylaxis
     Dosage: 110.5 MICROGRAM, SINGLE
     Route: 042
     Dates: start: 20230414, end: 20230414
  2. TZIELD [Suspect]
     Active Substance: TEPLIZUMAB-MZWV
     Dosage: 212.5 MICROGRAM, SINGLE
     Route: 042
     Dates: start: 20230415, end: 20230415
  3. TZIELD [Suspect]
     Active Substance: TEPLIZUMAB-MZWV
     Dosage: 425 MICROGRAM, SINGLE
     Route: 042
     Dates: start: 20230416, end: 20230416
  4. TZIELD [Suspect]
     Active Substance: TEPLIZUMAB-MZWV
     Dosage: 820 MICROGRAM, SINGLE
     Route: 042
     Dates: start: 20230417, end: 20230417
  5. TZIELD [Suspect]
     Active Substance: TEPLIZUMAB-MZWV
     Dosage: 1689.2 MICROGRAM, SINGLE
     Route: 042
     Dates: start: 20230418, end: 20230419

REACTIONS (6)
  - Pain [Unknown]
  - Drug ineffective [Unknown]
  - Headache [Recovered/Resolved]
  - Rash [Unknown]
  - Pyrexia [Recovered/Resolved]
  - Pyrexia [Unknown]

NARRATIVE: CASE EVENT DATE: 20230414
